FAERS Safety Report 17315792 (Version 1)
Quarter: 2020Q1

REPORT INFORMATION
  Report Type: Spontaneous
  Country: US (occurrence: US)
  Receive Date: 20200124
  Receipt Date: 20200124
  Transmission Date: 20200409
  Serious: No
  Sender: FDA-Public Use
  Company Number: US-PFIZER INC-2020031236

PATIENT
  Age: 43 Year
  Sex: Female
  Weight: 118.8 kg

DRUGS (2)
  1. DICLOFENAC EPOLAMINE [Suspect]
     Active Substance: DICLOFENAC EPOLAMINE
     Indication: BACK PAIN
     Dosage: 1 DF, AS NEEDED (1 PATCH, EVERY 12 HOURS OR WHEN NEEDED)
     Route: 061
     Dates: start: 20191001, end: 20191031
  2. DICLOFENAC EPOLAMINE [Suspect]
     Active Substance: DICLOFENAC EPOLAMINE
     Indication: MUSCULOSKELETAL PAIN

REACTIONS (1)
  - Drug ineffective [Unknown]
